FAERS Safety Report 6961187-X (Version None)
Quarter: 2010Q3

REPORT INFORMATION
  Report Type: 
  Country: None (occurrence: None)
  Receive Date: 20100901
  Receipt Date: 20100826
  Transmission Date: 20110219
  Serious: Yes (Hospitalization)
  Sender: FDA-Public Use
  Company Number: DE-NICOBRDEV-2010-11552

PATIENT
  Sex: Male

DRUGS (3)
  1. KENTERA (WATSON LABORATORIES) [Suspect]
     Indication: URINARY INCONTINENCE
     Dosage: 1 PATCH 2/WEEK
     Route: 062
     Dates: start: 20100401, end: 20100826
  2. LEVODOPA [Concomitant]
     Indication: PARKINSON'S DISEASE
     Dosage: UNK
  3. PRAMIPEXOLE DIHYDROCHLORIDE [Concomitant]
     Indication: PARKINSON'S DISEASE
     Dosage: UNK

REACTIONS (1)
  - URINARY TRACT INFECTION [None]
